FAERS Safety Report 15178409 (Version 1)
Quarter: 2018Q3

REPORT INFORMATION
  Report Type: Spontaneous
  Country: US (occurrence: US)
  Receive Date: 20180722
  Receipt Date: 20180722
  Transmission Date: 20181010
  Serious: No
  Sender: FDA-Public Use
  Company Number: US-JNJFOC-20180711436

PATIENT
  Age: 14 Year
  Sex: Female

DRUGS (1)
  1. ORTHO TRI CYCLEN LO [Suspect]
     Active Substance: ETHINYL ESTRADIOL\NORGESTIMATE
     Indication: ACNE
     Dosage: STARTED ABOUT 4 YEARS AGO
     Route: 048

REACTIONS (4)
  - Hair growth abnormal [Unknown]
  - Drug administered to patient of inappropriate age [Unknown]
  - Headache [Unknown]
  - Acne [Unknown]
